FAERS Safety Report 4455515-7 (Version None)
Quarter: 2004Q3

REPORT INFORMATION
  Report Type: 
  Country: None (occurrence: None)
  Receive Date: 20040921
  Receipt Date: 20040903
  Transmission Date: 20050211
  Serious: Yes (Disabling)
  Sender: FDA-Public Use
  Company Number: 2004SE03411

PATIENT
  Age: 51 Year
  Sex: Male
  Weight: 76.7 kg

DRUGS (2)
  1. CRESTOR [Suspect]
     Indication: HYPERCHOLESTEROLAEMIA
     Dosage: 10 MG DAILY PO
     Route: 048
     Dates: start: 20031210, end: 20040601
  2. ZYLORIC [Concomitant]

REACTIONS (1)
  - HEPATITIS ALCOHOLIC [None]
